FAERS Safety Report 9228445 (Version 1)
Quarter: 2013Q2

REPORT INFORMATION
  Report Type: Report from Study
  Country: GB (occurrence: GB)
  Receive Date: 20130412
  Receipt Date: 20130412
  Transmission Date: 20140414
  Serious: Yes (Hospitalization)
  Sender: FDA-Public Use
  Company Number: GB-ROCHE-1212595

PATIENT
  Age: 74 Year
  Sex: Female

DRUGS (8)
  1. TENECTEPLASE [Suspect]
     Indication: ACUTE MYOCARDIAL INFARCTION
     Route: 042
     Dates: start: 19961105, end: 19961105
  2. HEPARIN [Concomitant]
     Route: 065
     Dates: start: 19961105, end: 19961105
  3. TEMAZEPAM [Concomitant]
     Route: 065
  4. LISINOPRIL [Concomitant]
     Route: 065
     Dates: start: 19961106
  5. ATENOLOL [Concomitant]
     Route: 065
     Dates: start: 19961108
  6. FLUVASTATIN [Concomitant]
     Route: 065
     Dates: start: 19961109
  7. IBUPROFEN [Concomitant]
     Route: 065
     Dates: start: 19961111, end: 19961111
  8. WARFARIN [Concomitant]
     Route: 065
     Dates: start: 19960611, end: 19960811

REACTIONS (1)
  - Cerebrovascular accident [Recovered/Resolved]
